FAERS Safety Report 8771052 (Version 1)
Quarter: 2012Q4

REPORT INFORMATION
  Report Type: Report from Study
  Country: US (occurrence: US)
  Receive Date: 20120906
  Receipt Date: 20120906
  Transmission Date: 20130627
  Serious: Yes (Other)
  Sender: FDA-Public Use
  Company Number: US-US-EMD SERONO, INC.-7158723

PATIENT
  Sex: Female

DRUGS (2)
  1. REBIF [Suspect]
     Indication: MULTIPLE SCLEROSIS
     Route: 058
     Dates: start: 20120628
  2. UNSPECIFIED ANALGESIC [Concomitant]
     Indication: PREMEDICATION

REACTIONS (7)
  - Headache [Recovering/Resolving]
  - Bronchitis [Not Recovered/Not Resolved]
  - Nasopharyngitis [Not Recovered/Not Resolved]
  - Blood glucose increased [Unknown]
  - Muscle spasms [Unknown]
  - Chills [Unknown]
  - Injection site bruising [Unknown]
